FAERS Safety Report 24567489 (Version 2)
Quarter: 2024Q4

REPORT INFORMATION
  Report Type: Other
  Country: CA (occurrence: CA)
  Receive Date: 20241031
  Receipt Date: 20241203
  Transmission Date: 20250115
  Serious: Yes (Death, Hospitalization, Other)
  Sender: APOTEX
  Company Number: CA-APOTEX-2024AP016889

PATIENT
  Sex: Female

DRUGS (1)
  1. ERLOTINIB HYDROCHLORIDE [Suspect]
     Active Substance: ERLOTINIB HYDROCHLORIDE
     Indication: Non-renal cell carcinoma of kidney
     Dosage: 150 MILLIGRAM
     Route: 048
     Dates: start: 20240911

REACTIONS (2)
  - Death [Fatal]
  - Hospitalisation [Unknown]

NARRATIVE: CASE EVENT DATE: 20240101
